FAERS Safety Report 5142208-6 (Version None)
Quarter: 2006Q4

REPORT INFORMATION
  Report Type: 
  Country: None (occurrence: None)
  Receive Date: 20061030
  Receipt Date: 20061030
  Transmission Date: 20070319
  Serious: Yes (Hospitalization)
  Sender: FDA-Public Use
  Company Number: None

PATIENT
  Age: 81 Year
  Sex: Male
  Weight: 61 kg

DRUGS (1)
  1. ASPIRIN [Suspect]
     Indication: CARDIAC DISORDER
     Dosage: 325MG   DAILY   PO
     Route: 048
     Dates: start: 20061001, end: 20061027

REACTIONS (1)
  - GASTROINTESTINAL HAEMORRHAGE [None]
